FAERS Safety Report 9505711 (Version 1)
Quarter: 2013Q1

REPORT INFORMATION
  Report Type: Spontaneous
  Country: US (occurrence: None)
  Receive Date: 20130220
  Receipt Date: 20130220
  Transmission Date: 20140127
  Serious: No
  Sender: FDA-Public Use
  Company Number: 1000041037

PATIENT
  Age: 58 Year
  Sex: Female

DRUGS (6)
  1. VIIBRYD [Suspect]
     Indication: DEPRESSION
     Route: 048
     Dates: start: 20121211
  2. VIIBRYD [Suspect]
     Indication: BIPOLAR DISORDER
     Route: 048
     Dates: start: 20121211
  3. XANAX (ALPRAZOLAM) (ALPRAZOLAM) [Concomitant]
  4. DEPAKOTE (VALPROATE SEMISODIUM) (VALPROATE SEMISODIUM) [Concomitant]
  5. THYROID MEDICATION NOS (THYROID MEDICATION NOS) (THYROID MEDICATION NOS) [Concomitant]
  6. CHOLESTEROL MEDIATION NOS (CHOLESTEROL MEDICATION NOS) (CHOLESTEROL MEDICATION NOS) [Concomitant]

REACTIONS (2)
  - Diarrhoea [None]
  - Cold sweat [None]
